FAERS Safety Report 16867279 (Version 1)
Quarter: 2019Q4

REPORT INFORMATION
  Report Type: Spontaneous
  Country: US (occurrence: US)
  Receive Date: 20190913
  Receipt Date: 20190913
  Transmission Date: 20200122
  Serious: No
  Sender: FDA-Public Use
  Company Number: None

PATIENT
  Age: 67 Year
  Sex: Female
  Weight: 66.22 kg

DRUGS (1)
  1. MORPHINE 25MG/ML 10ML [Suspect]
     Active Substance: MORPHINE
     Indication: PAIN
     Dosage: 40 ML EVERY 90 DAYS INTRATHECAL PUMP
     Dates: start: 20190829

REACTIONS (2)
  - Product compounding quality issue [None]
  - Product contamination microbial [None]

NARRATIVE: CASE EVENT DATE: 20190829
